FAERS Safety Report 12566288 (Version 1)
Quarter: 2016Q3

REPORT INFORMATION
  Report Type: Spontaneous
  Country: CA (occurrence: CA)
  Receive Date: 20160718
  Receipt Date: 20160718
  Transmission Date: 20161109
  Serious: Yes (Hospitalization)
  Sender: FDA-Public Use
  Company Number: CA-HQ SPECIALTY-CA-2016INT000545

PATIENT
  Age: 70 Year
  Sex: Male

DRUGS (3)
  1. TOFACITINIB [Suspect]
     Active Substance: TOFACITINIB
     Indication: RHEUMATOID ARTHRITIS
     Dosage: 10 MG (5 MG,2 IN 1 D)
     Route: 048
     Dates: start: 20150813
  2. LEFLUNOMIDE. [Concomitant]
     Active Substance: LEFLUNOMIDE
     Indication: PRODUCT USED FOR UNKNOWN INDICATION
     Dosage: 20 MG (20 MG, 1 IN 1 D)
     Dates: start: 201504, end: 201508
  3. METHOTREXATE SODIUM. [Suspect]
     Active Substance: METHOTREXATE SODIUM
     Indication: RHEUMATOID ARTHRITIS
     Dosage: 2.8571 MG (20 MG,1 IN 1 W)
     Dates: start: 200504, end: 201601

REACTIONS (1)
  - Lung infection [Recovering/Resolving]
